FAERS Safety Report 7777156-6 (Version None)
Quarter: 2011Q3

REPORT INFORMATION
  Report Type: 
  Country: None (occurrence: None)
  Receive Date: 20110922
  Receipt Date: 20110912
  Transmission Date: 20111222
  Serious: Yes (Other)
  Sender: FDA-Public Use
  Company Number: 2011SP043126

PATIENT

DRUGS (1)
  1. ESMERON (ROCURONIUM BROMIDE /01245702/) [Suspect]
     Indication: MUSCLE RELAXANT THERAPY

REACTIONS (1)
  - NEUROMUSCULAR BLOCK PROLONGED [None]
